FAERS Safety Report 7129620-0 (Version None)
Quarter: 2010Q4

REPORT INFORMATION
  Report Type: 
  Country: None (occurrence: None)
  Receive Date: 20101130
  Receipt Date: 20101124
  Transmission Date: 20110411
  Serious: Yes (Hospitalization, Other)
  Sender: FDA-Public Use
  Company Number: US-ROXANE LABORATORIES, INC.-2010-RO-01548RO

PATIENT
  Age: 4 Year
  Sex: Female

DRUGS (2)
  1. METHADONE HCL [Suspect]
  2. LORAZEPAM [Suspect]
     Indication: STATUS EPILEPTICUS
     Route: 042

REACTIONS (3)
  - DRUG INEFFECTIVE [None]
  - OVERDOSE [None]
  - STATUS EPILEPTICUS [None]
